FAERS Safety Report 19891396 (Version 3)
Quarter: 2022Q2

REPORT INFORMATION
  Report Type: Spontaneous
  Country: VE (occurrence: VE)
  Receive Date: 20210927
  Receipt Date: 20220608
  Transmission Date: 20220721
  Serious: Yes (Hospitalization)
  Sender: FDA-Public Use
  Company Number: VE-NOVARTISPH-NVSC2021VE124756

PATIENT
  Sex: Male

DRUGS (2)
  1. GLIVEC [Suspect]
     Active Substance: IMATINIB MESYLATE
     Indication: Chronic myeloid leukaemia
     Dosage: 4 DF (400 MG, 4X 100 MG)
     Route: 065
  2. GLIVEC [Suspect]
     Active Substance: IMATINIB MESYLATE
     Dosage: 300 MG (3 X 100 MG)
     Route: 065

REACTIONS (18)
  - COVID-19 [Unknown]
  - Respiratory symptom [Unknown]
  - Pneumonia [Unknown]
  - Post-acute COVID-19 syndrome [Unknown]
  - Hyperhidrosis [Unknown]
  - Myalgia [Unknown]
  - Ear infection [Unknown]
  - Drug intolerance [Unknown]
  - Diarrhoea [Not Recovered/Not Resolved]
  - Abdominal pain [Not Recovered/Not Resolved]
  - Flatulence [Not Recovered/Not Resolved]
  - Dizziness [Unknown]
  - Hypertension [Unknown]
  - Asthenia [Unknown]
  - Chills [Unknown]
  - White blood cell count increased [Unknown]
  - Cytogenetic analysis abnormal [Unknown]
  - Loss of therapeutic response [Unknown]
